FAERS Safety Report 5940990-9 (Version None)
Quarter: 2008Q4

REPORT INFORMATION
  Report Type: 
  Country: None (occurrence: None)
  Receive Date: 20081104
  Receipt Date: 20081030
  Transmission Date: 20090506
  Serious: Yes (Hospitalization)
  Sender: FDA-Public Use
  Company Number: JP-ABBOTT-08P-087-0475707-00

PATIENT
  Age: 23 Year
  Sex: Male

DRUGS (10)
  1. CLARITHROMYCIN [Suspect]
     Indication: INFECTION
     Route: 048
     Dates: start: 20040607, end: 20040615
  2. VALACYCLOVIR HYDROCHLORIDE [Suspect]
     Indication: HERPES ZOSTER
     Route: 048
     Dates: start: 20040605, end: 20040607
  3. TOSUFLOXACIN TOSILATE [Suspect]
     Indication: UPPER RESPIRATORY TRACT INFLAMMATION
     Route: 048
     Dates: start: 20040602, end: 20040605
  4. LOXOPROFEN [Suspect]
     Indication: PYREXIA
     Route: 048
     Dates: start: 20040607, end: 20040615
  5. LOXOPROFEN [Suspect]
     Route: 048
     Dates: start: 20040602, end: 20040605
  6. TEPRENONE [Suspect]
     Indication: PROPHYLAXIS AGAINST GASTROINTESTINAL ULCER
     Route: 048
     Dates: start: 20040607, end: 20040615
  7. TEPRENONE [Suspect]
     Route: 048
     Dates: start: 20040602, end: 20040605
  8. DIMEMORFAN PHOSPHATE [Suspect]
     Indication: COUGH
     Route: 048
     Dates: start: 20040602, end: 20040605
  9. CARBOCISTEINE [Suspect]
     Indication: COUGH
     Route: 048
     Dates: start: 20040602, end: 20040605
  10. CYANOCOBALAMIN [Suspect]
     Indication: DRUG USE FOR UNKNOWN INDICATION
     Route: 048
     Dates: start: 20040605, end: 20040607

REACTIONS (2)
  - DISSEMINATED CRYPTOCOCCOSIS [None]
  - EOSINOPHILIA [None]
